FAERS Safety Report 22042542 (Version 1)
Quarter: 2023Q1

REPORT INFORMATION
  Report Type: Spontaneous
  Country: CG (occurrence: CD)
  Receive Date: 20230228
  Receipt Date: 20230228
  Transmission Date: 20230417
  Serious: Yes (Other)
  Sender: FDA-Public Use
  Company Number: CG-SUN PHARMACEUTICAL INDUSTRIES LTD-2023RR-379618

PATIENT
  Weight: 2 kg

DRUGS (5)
  1. CEFTRIAXONE [Suspect]
     Active Substance: CEFTRIAXONE
     Indication: Premature labour
     Dosage: 2 GRAM, QD
     Route: 065
  2. ACETAMINOPHEN [Suspect]
     Active Substance: ACETAMINOPHEN
     Indication: Premature labour
     Dosage: 1 GRAM, BID
     Route: 065
  3. TRAMADOL [Suspect]
     Active Substance: TRAMADOL
     Indication: Premature labour
     Dosage: 100 MILLIGRAM, BID
     Route: 065
  4. ARTESUNATE [Concomitant]
     Active Substance: ARTESUNATE
     Indication: Product used for unknown indication
     Dosage: 140 MILLIGRAM, UNK
     Route: 065
  5. PHLOROGLUCINOL [Concomitant]
     Active Substance: PHLOROGLUCINOL
     Indication: Premature labour
     Dosage: 80 MILLIGRAM, BID
     Route: 065

REACTIONS (3)
  - Foetal exposure during pregnancy [Unknown]
  - Underweight [Unknown]
  - Premature baby [Unknown]
